FAERS Safety Report 4373402-X (Version None)
Quarter: 2004Q2

REPORT INFORMATION
  Report Type: 
  Country: None (occurrence: None)
  Receive Date: 20040603
  Receipt Date: 20040518
  Transmission Date: 20050107
  Serious: Yes (Hospitalization)
  Sender: FDA-Public Use
  Company Number: A03200401391

PATIENT
  Age: 58 Year
  Sex: Female
  Weight: 132.4503 kg

DRUGS (8)
  1. ELOXATIN [Suspect]
     Indication: COLON CANCER
     Dosage: 180 MG Q3W - INTRAVENOUS NOS
     Route: 042
     Dates: start: 20040414, end: 20040414
  2. ELOXATIN [Suspect]
     Indication: METASTASES TO OVARY
     Dosage: 180 MG Q3W - INTRAVENOUS NOS
     Route: 042
     Dates: start: 20040414, end: 20040414
  3. FLUOROURACIL [Concomitant]
  4. LEUCOVORIN [Concomitant]
  5. DEXAMETHASONE [Concomitant]
  6. RANITIDINE HYDROCHLORIDE [Concomitant]
  7. DIPHENHYDRAMINE HCL [Concomitant]
  8. PALONOSETRON [Concomitant]

REACTIONS (4)
  - BLISTER [None]
  - BLOOD POTASSIUM DECREASED [None]
  - GOUT [None]
  - SKIN NECROSIS [None]
